FAERS Safety Report 5997990-2 (Version None)
Quarter: 2008Q4

REPORT INFORMATION
  Report Type: 
  Country: None (occurrence: None)
  Receive Date: 20081211
  Receipt Date: 20081126
  Transmission Date: 20090506
  Serious: No
  Sender: FDA-Public Use
  Company Number: C-08-0084-W

PATIENT
  Age: 70 Year
  Sex: Male

DRUGS (4)
  1. ENALAPRIL MALEATE [Suspect]
     Indication: HYPERTENSION
     Dosage: 20MG TABLET/DAY/ORAL
     Route: 048
     Dates: start: 20081101
  2. PREVACID [Concomitant]
  3. ZOCOR [Concomitant]
  4. GLUCOSAMINE/CHONDROITIN [Concomitant]

REACTIONS (6)
  - BLOOD PRESSURE DIASTOLIC INCREASED [None]
  - DISEASE PROGRESSION [None]
  - INCORRECT DOSE ADMINISTERED [None]
  - MEDICATION ERROR [None]
  - POOR QUALITY DRUG ADMINISTERED [None]
  - TREATMENT FAILURE [None]
